FAERS Safety Report 8923349 (Version 3)
Quarter: 2013Q1

REPORT INFORMATION
  Report Type: Spontaneous
  Country: US (occurrence: None)
  Receive Date: 20121114
  Receipt Date: 20130215
  Transmission Date: 20140127
  Serious: Yes (Death, Life-Threatening, Hospitalization, Other)
  Sender: FDA-Public Use
  Company Number: 1474271

PATIENT
  Age: 12 Year
  Sex: Female

DRUGS (38)
  1. DEXTROSE [Concomitant]
  2. HYDROMORPHONE [Concomitant]
  3. VINCRISTINE [Suspect]
     Indication: PRODUCT USED FOR UNKNOWN INDICATION
     Dosage: 1 DOSAGE FORM, NOT REPORTED (UNKNOWN) INTRAVENOUS (NOT OTHERWISE SPECIFIED)
     Route: 042
     Dates: start: 20120723, end: 20120806
  4. DAUNORUBICIN [Suspect]
     Indication: PRODUCT USED FOR UNKNOWN INDICATION
     Dosage: 1 DOSAGE FORM, NOT REPORTED (UNKNOWN) INTRAVENOUS (NOT OTHERWISE SPECIFIED
     Route: 042
     Dates: start: 20120723, end: 20120806
  5. DASATINIB [Suspect]
     Indication: ACUTE LYMPHOCYTIC LEUKAEMIA
     Route: 048
     Dates: start: 20120730
  6. DOXORUBICIN [Suspect]
     Indication: ACUTE LYMPHOCYTIC LEUKAEMIA
     Dosage: 40 MILLIGRAM, NOT REPORTED (UNKNOWN), INTRAVENOUS (NOT OTHERWISE SPECIFIED)
     Route: 048
     Dates: start: 20120730, end: 20120806
  7. CYCLOPHOSPHAMIDE [Suspect]
     Indication: ACUTE LYMPHOCYTIC LEUKAEMIA
     Dosage: 1400 MILLIGRAM, NOT REPORTED (UNKNOWN) INTRAVENOUS (NOT OTHERWISE SPECIFIED)
     Route: 042
     Dates: start: 20121005
  8. CYTARABINE [Suspect]
     Indication: ACUTE LYMPHOCYTIC LEUKAEMIA
     Dosage: 98 MILLIGRAM, NOT REPORTED (UNKNOWN) INTRAVENOUS (NOT OTHERWISE SPECIFIED)
     Route: 042
     Dates: start: 20121002, end: 20121005
  9. ETOPOSIDE [Suspect]
     Dosage: INTRAVENOUS (NOT OTHERWISE SPECIFIED)
     Dates: start: 20121222, end: 20121223
  10. PEGASPARGASE [Suspect]
     Dosage: INTRAVENOUS (NOT OTHERWISE SPECIFIED)?
     Dates: start: 20121224, end: 20121224
  11. DIPHENHYDRAMINE [Concomitant]
  12. HEPARIN FLUSH [Concomitant]
  13. BACTRIM [Concomitant]
  14. ACETAMINOPHEN [Concomitant]
  15. MELATONIN [Concomitant]
  16. CHLORHEXIDINE [Concomitant]
  17. CEFTAZIDIME [Concomitant]
  18. POLYETHYLENE GLYCOL 3350 [Concomitant]
  19. SIMETHICONE [Concomitant]
  20. SODIUM CHLORIDE [Concomitant]
  21. LIDOCAINE [Concomitant]
  22. ATIVAN [Concomitant]
  23. MORPHINE [Concomitant]
  24. COLACE [Concomitant]
  25. ADRENALIN [Concomitant]
  26. HYDROCORTISONE [Concomitant]
  27. SEPTRA [Concomitant]
  28. VANCOMYCIN [Concomitant]
  29. MAGNESIUM [Concomitant]
  30. CALCIUM CARBONATE [Concomitant]
  31. METRONIDAZOLE [Concomitant]
  32. FUROSEMIDE [Concomitant]
  33. PERIDEX [Concomitant]
  34. METHYLPREDNISOLONE [Concomitant]
  35. ALBUMIN [Concomitant]
  36. HALDOL [Concomitant]
  37. RISPERDAL [Concomitant]
  38. NALOXONE [Concomitant]

REACTIONS (9)
  - Encephalopathy [None]
  - Large intestinal ulcer [None]
  - Bacteraemia [None]
  - Generalised oedema [None]
  - Haemoglobin decreased [None]
  - Colitis [None]
  - Angiodysplasia [None]
  - Vascular neoplasm [None]
  - Haemorrhage [None]
